FAERS Safety Report 25189828 (Version 1)
Quarter: 2025Q2

REPORT INFORMATION
  Report Type: Spontaneous
  Country: US (occurrence: US)
  Receive Date: 20250411
  Receipt Date: 20250411
  Transmission Date: 20250716
  Serious: Yes (Hospitalization, Other)
  Sender: GLAND PHARMA
  Company Number: US-GLANDPHARMA-US-2025GLNSPO01031

PATIENT
  Age: 48 Year
  Sex: Female

DRUGS (2)
  1. CARBOPLATIN [Suspect]
     Active Substance: CARBOPLATIN
     Indication: Non-small cell lung cancer stage IIIB
     Route: 065
     Dates: start: 2024
  2. PACLITAXEL [Suspect]
     Active Substance: PACLITAXEL
     Indication: Non-small cell lung cancer stage IIIB
     Route: 065

REACTIONS (6)
  - Osteoporosis [Unknown]
  - Metastases to thyroid [Unknown]
  - Pain [Unknown]
  - Pleural effusion [Unknown]
  - Illness [Unknown]
  - Product use in unapproved indication [Unknown]
